FAERS Safety Report 7248036-X (Version None)
Quarter: 2011Q1

REPORT INFORMATION
  Report Type: 
  Country: None (occurrence: None)
  Receive Date: 20110127
  Receipt Date: 20110124
  Transmission Date: 20110831
  Serious: Yes (Hospitalization)
  Sender: FDA-Public Use
  Company Number: SE-PFIZER INC-2011016324

PATIENT
  Age: 67 Year
  Sex: Male

DRUGS (6)
  1. TROMBYL [Concomitant]
     Dosage: UNK
  2. LINCOCIN [Suspect]
     Indication: PYREXIA
     Dosage: 600 MG, 1X/DAY
     Route: 030
  3. SIMVASTATIN [Concomitant]
     Dosage: UNK
  4. WARAN [Concomitant]
     Dosage: UNK
  5. SELOKEN [Concomitant]
     Dosage: UNK
  6. FURADANTIN [Concomitant]
     Dosage: UNK

REACTIONS (4)
  - NAUSEA [None]
  - URINARY TRACT INFECTION BACTERIAL [None]
  - PYREXIA [None]
  - DRUG INEFFECTIVE [None]
